FAERS Safety Report 6298679-5 (Version None)
Quarter: 2009Q3

REPORT INFORMATION
  Report Type: 
  Country: None (occurrence: None)
  Receive Date: 20090804
  Receipt Date: 20090729
  Transmission Date: 20100115
  Serious: Yes (Hospitalization)
  Sender: FDA-Public Use
  Company Number: SPV1-2009-01559

PATIENT
  Age: 52 Year
  Sex: Female
  Weight: 79.4 kg

DRUGS (7)
  1. FOSRENOL [Suspect]
     Indication: HYPERPHOSPHATAEMIA
     Dosage: 1500 MG, 3X/DAY:TID, ORAL
     Route: 048
  2. MINOXIDIL [Concomitant]
  3. HYDRALAZINE HCL [Concomitant]
  4. LABETALOL HCL [Concomitant]
  5. NEPHROCAPS (ASCORBIC ACID, BIOTIN, CYANOCOBALAMIN, FOLIC ACID, NICOTIN [Concomitant]
  6. LANTUS [Concomitant]
  7. NOVOLOG [Concomitant]

REACTIONS (2)
  - CEREBROVASCULAR ACCIDENT [None]
  - COMA [None]
